FAERS Safety Report 17988916 (Version 1)
Quarter: 2020Q3

REPORT INFORMATION
  Report Type: Spontaneous
  Country: BG (occurrence: BG)
  Receive Date: 20200707
  Receipt Date: 20200707
  Transmission Date: 20201103
  Serious: Yes (Death, Other)
  Sender: FDA-Public Use
  Company Number: BG-AMGEN-BGRNI2020105974

PATIENT
  Age: 56 Year
  Sex: Female
  Weight: 77 kg

DRUGS (10)
  1. PACLITAXEL. [Suspect]
     Active Substance: PACLITAXEL
     Indication: NEOPLASM MALIGNANT
     Dosage: UNK
     Route: 065
  2. BEVACIZUMAB. [Suspect]
     Active Substance: BEVACIZUMAB
     Indication: NEOPLASM MALIGNANT
     Dosage: UNK
     Route: 065
  3. ETOPOSIDE. [Suspect]
     Active Substance: ETOPOSIDE
     Indication: NEOPLASM MALIGNANT
     Dosage: UNK
     Route: 065
  4. FILGRASTIM [Concomitant]
     Active Substance: FILGRASTIM
     Indication: LEUKOPENIA
     Dosage: UNK
     Dates: start: 20200607, end: 20200608
  5. CEFTRIAXONE. [Concomitant]
     Active Substance: CEFTRIAXONE
     Indication: LEUKOPENIA
     Dosage: UNK
     Dates: start: 20200607, end: 20200608
  6. ATEZOLIZUMAB. [Suspect]
     Active Substance: ATEZOLIZUMAB
     Dosage: 1200 MILLIGRAM, Q3WK
     Route: 041
     Dates: start: 20200526
  7. LOPERAMID [Concomitant]
     Active Substance: LOPERAMIDE
     Indication: DIARRHOEA
     Dosage: UNK
     Dates: start: 20200607, end: 20200608
  8. CARBOPLATIN. [Suspect]
     Active Substance: CARBOPLATIN
     Indication: NEOPLASM MALIGNANT
     Dosage: UNK
     Route: 065
  9. ATEZOLIZUMAB. [Suspect]
     Active Substance: ATEZOLIZUMAB
     Indication: NEOPLASM MALIGNANT
     Dosage: 1200 MILLIGRAM, Q3WK
     Route: 041
     Dates: start: 20200503
  10. CORTICOSTEROIDS [Concomitant]
     Active Substance: CORTICOSTEROID NOS
     Indication: DYSPNOEA
     Dosage: UNK
     Dates: start: 20200507, end: 20200608

REACTIONS (3)
  - Leukopenia [Fatal]
  - Nausea [Fatal]
  - Diarrhoea [Fatal]

NARRATIVE: CASE EVENT DATE: 20200607
